FAERS Safety Report 15272035 (Version 1)
Quarter: 2018Q3

REPORT INFORMATION
  Report Type: Spontaneous
  Country: ES (occurrence: ES)
  Receive Date: 20180813
  Receipt Date: 20180813
  Transmission Date: 20181010
  Serious: Yes (Other)
  Sender: FDA-Public Use
  Company Number: ES-CELGENEUS-ESP-20180709960

PATIENT
  Age: 85 Year
  Sex: Male

DRUGS (1)
  1. THALIDOMIDE CELGENE [Suspect]
     Active Substance: THALIDOMIDE
     Indication: GASTROINTESTINAL VASCULAR MALFORMATION HAEMORRHAGIC
     Route: 048

REACTIONS (5)
  - Peripheral ischaemia [Unknown]
  - General physical health deterioration [Unknown]
  - Haemorrhage [Unknown]
  - Hypotension [Unknown]
  - Cerebrovascular accident [Unknown]
